FAERS Safety Report 6253807-2 (Version None)
Quarter: 2009Q2

REPORT INFORMATION
  Report Type: 
  Country: None (occurrence: None)
  Receive Date: 20090629
  Receipt Date: 20090629
  Transmission Date: 20091009
  Serious: Yes (Disabling)
  Sender: FDA-Public Use
  Company Number: None

PATIENT
  Age: 60 Year
  Sex: Male
  Weight: 88.6 kg

DRUGS (1)
  1. ZICAM SPRAY [Suspect]
     Indication: NASOPHARYNGITIS
     Dosage: I SPRAY IN EACH NOSTREL ONCE NOSE
     Route: 045
     Dates: start: 20040101, end: 20050101

REACTIONS (7)
  - AGEUSIA [None]
  - ANOSMIA [None]
  - CAUSTIC INJURY [None]
  - HEADACHE [None]
  - HYPOGEUSIA [None]
  - HYPOSMIA [None]
  - NERVOUS SYSTEM DISORDER [None]
